FAERS Safety Report 8301110-9 (Version None)
Quarter: 2012Q2

REPORT INFORMATION
  Report Type: 
  Country: None (occurrence: None)
  Receive Date: 20120420
  Receipt Date: 20120416
  Transmission Date: 20120825
  Serious: Yes (Death, Hospitalization, Other)
  Sender: FDA-Public Use
  Company Number: US-JNJFOC-20120407343

PATIENT
  Age: 58 Year
  Sex: Male

DRUGS (6)
  1. ATIVAN [Concomitant]
     Dosage: BEDTIME
     Route: 048
  2. COGENTIN [Concomitant]
     Route: 048
  3. PERPHENAZINE [Concomitant]
     Route: 048
  4. HALDOL [Suspect]
     Route: 030
  5. HALDOL [Suspect]
     Indication: PRODUCT USED FOR UNKNOWN INDICATION
     Route: 030
  6. SIMVASTATIN [Concomitant]
     Route: 048

REACTIONS (4)
  - AGRANULOCYTOSIS [None]
  - CARDIAC ARREST [None]
  - PULMONARY EMBOLISM [None]
  - NEUROLEPTIC MALIGNANT SYNDROME [None]
